FAERS Safety Report 10676716 (Version 4)
Quarter: 2015Q1

REPORT INFORMATION
  Report Type: Spontaneous
  Country: US (occurrence: US)
  Receive Date: 20141226
  Receipt Date: 20150119
  Transmission Date: 20150720
  Serious: Yes (Hospitalization, Other)
  Sender: FDA-Public Use
  Company Number: US-DENDREON CORPORATION-2014PROUSA04219

PATIENT
  Age: 61 Year
  Sex: Male

DRUGS (3)
  1. PROVENGE [Suspect]
     Active Substance: SIPULEUCEL-T
     Indication: PROSTATE CANCER METASTATIC
     Dosage: 250 ML, SINGLE
     Route: 042
     Dates: start: 20141113, end: 20141113
  2. PLAVIX [Suspect]
     Active Substance: CLOPIDOGREL BISULFATE
     Indication: PRODUCT USED FOR UNKNOWN INDICATION
  3. PROVENGE [Suspect]
     Active Substance: SIPULEUCEL-T
     Dosage: 250 ML, SINGLE
     Route: 042
     Dates: start: 20141201, end: 20141201

REACTIONS (20)
  - Status epilepticus [Not Recovered/Not Resolved]
  - Liver function test abnormal [Not Recovered/Not Resolved]
  - Malnutrition [Not Recovered/Not Resolved]
  - Anaemia of chronic disease [Not Recovered/Not Resolved]
  - Haemorrhage intracranial [Recovered/Resolved with Sequelae]
  - Carbon dioxide decreased [Recovering/Resolving]
  - Insomnia [Unknown]
  - Depression [Not Recovered/Not Resolved]
  - Fall [Recovered/Resolved]
  - Craniocerebral injury [Recovering/Resolving]
  - Metastases to central nervous system [Unknown]
  - Aortic valve incompetence [Unknown]
  - Excoriation [Not Recovered/Not Resolved]
  - Hypotension [Recovered/Resolved]
  - Dyskinesia [Not Recovered/Not Resolved]
  - Dilatation ventricular [Unknown]
  - Diastolic dysfunction [Unknown]
  - Metabolic encephalopathy [Unknown]
  - Hypocalcaemia [Recovered/Resolved]
  - Gout [Not Recovered/Not Resolved]

NARRATIVE: CASE EVENT DATE: 201412
